FAERS Safety Report 7007016-X (Version None)
Quarter: 2010Q3

REPORT INFORMATION
  Report Type: 
  Country: None (occurrence: None)
  Receive Date: 20100922
  Receipt Date: 20100914
  Transmission Date: 20110219
  Serious: No
  Sender: FDA-Public Use
  Company Number: US-US-EMD SERONO, INC.-7017683

PATIENT
  Sex: Female
  Weight: 68 kg

DRUGS (6)
  1. REBIF [Suspect]
     Indication: MULTIPLE SCLEROSIS
     Route: 058
     Dates: start: 20080926, end: 20091104
  2. TOPROL-XL [Concomitant]
     Indication: HYPERTENSION
  3. GABAPENTIN [Concomitant]
     Indication: MULTIPLE SCLEROSIS
  4. MEDROXYPROGESTERONE [Concomitant]
     Indication: MENOPAUSE
  5. ESTRADIOL [Concomitant]
     Indication: MENOPAUSE
  6. VITAMIN B-12 [Concomitant]
     Indication: ASTHENIA

REACTIONS (10)
  - BRAIN MIDLINE SHIFT [None]
  - CENTRAL NERVOUS SYSTEM LESION [None]
  - DIARRHOEA [None]
  - FACIAL BONES FRACTURE [None]
  - HEADACHE [None]
  - INJECTION SITE MASS [None]
  - PAIN [None]
  - PHYSICAL ABUSE [None]
  - POST-TRAUMATIC STRESS DISORDER [None]
  - WEIGHT DECREASED [None]
